FAERS Safety Report 6964855-9 (Version None)
Quarter: 2010Q3

REPORT INFORMATION
  Report Type: 
  Country: None (occurrence: None)
  Receive Date: 20100903
  Receipt Date: 20100824
  Transmission Date: 20110219
  Serious: Yes (Other)
  Sender: FDA-Public Use
  Company Number: US-JNJFOC-20100807993

PATIENT
  Age: 60 Year
  Sex: Female
  Weight: 81.65 kg

DRUGS (1)
  1. STELARA [Suspect]
     Indication: PSORIASIS
     Dosage: THE PATIENT RECEIVED THE 3RD DOSE AT WEEK 16 (DATE NOT REPORTED)
     Route: 058

REACTIONS (1)
  - PUSTULAR PSORIASIS [None]
